FAERS Safety Report 4966467-5 (Version None)
Quarter: 2006Q2

REPORT INFORMATION
  Report Type: 
  Country: None (occurrence: None)
  Receive Date: 20060403
  Receipt Date: 20060317
  Transmission Date: 20061013
  Serious: Yes (Other)
  Sender: FDA-Public Use
  Company Number: 34352

PATIENT
  Sex: 0

DRUGS (3)
  1. BSS PLUS [Suspect]
     Indication: SURGERY
  2. BSS PLUS [Suspect]
     Indication: SURGERY
  3. DUOVISC [Suspect]
     Indication: SURGERY

REACTIONS (2)
  - CATARACT OPERATION COMPLICATION [None]
  - POSTOPERATIVE INFECTION [None]
